FAERS Safety Report 18988199 (Version 3)
Quarter: 2021Q4

REPORT INFORMATION
  Report Type: Report from Study
  Country: DE (occurrence: DE)
  Receive Date: 20210309
  Receipt Date: 20211022
  Transmission Date: 20220303
  Serious: Yes (Hospitalization, Other)
  Sender: FDA-Public Use
  Company Number: DE-ROCHE-2771234

PATIENT
  Sex: Male

DRUGS (15)
  1. UNSPECIFIED INGREDIENT [Suspect]
     Active Substance: UNSPECIFIED INGREDIENT
     Dosage: NO DOSE GIVEN
  2. METHOTREXATE SODIUM [Suspect]
     Active Substance: METHOTREXATE SODIUM
     Indication: Rheumatoid arthritis
     Dosage: 10 MG, WEEKLY
     Route: 065
  3. XELJANZ [Suspect]
     Active Substance: TOFACITINIB CITRATE
     Indication: Rheumatoid arthritis
     Dosage: UNK
     Dates: start: 201903, end: 201910
  4. TOCILIZUMAB [Suspect]
     Active Substance: TOCILIZUMAB
     Indication: Rheumatoid arthritis
     Dosage: 162 MG, WEEKLY
     Route: 058
     Dates: start: 201911
  5. ORENCIA [Suspect]
     Active Substance: ABATACEPT
     Indication: Rheumatoid arthritis
     Dosage: 125 MG
     Dates: start: 201712, end: 201903
  6. ASPIRIN [Concomitant]
     Active Substance: ASPIRIN
  7. EVOLOCUMAB [Concomitant]
     Active Substance: EVOLOCUMAB
  8. MESALAMINE [Concomitant]
     Active Substance: MESALAMINE
  9. MOLSIDOMINE [Concomitant]
     Active Substance: MOLSIDOMINE
  10. RAMIPRIL [Concomitant]
     Active Substance: RAMIPRIL
  11. FOLIC ACID [Concomitant]
     Active Substance: FOLIC ACID
  12. CHOLECALCIFEROL [Concomitant]
     Active Substance: CHOLECALCIFEROL
  13. PREDNISOLONE [Concomitant]
     Active Substance: PREDNISOLONE
  14. ATORVASTATIN CALCIUM [Concomitant]
     Active Substance: ATORVASTATIN CALCIUM
  15. PANTOPRAZOLE SODIUM [Concomitant]
     Active Substance: PANTOPRAZOLE SODIUM

REACTIONS (5)
  - Colitis ulcerative [Unknown]
  - Cerebral infarction [Recovered/Resolved]
  - Transient ischaemic attack [Unknown]
  - Cerebrovascular accident [Unknown]
  - Reversible ischaemic neurological deficit [Unknown]

NARRATIVE: CASE EVENT DATE: 20201028
